FAERS Safety Report 12833447 (Version 2)
Quarter: 2016Q4

REPORT INFORMATION
  Report Type: Report from Study
  Country: US (occurrence: US)
  Receive Date: 20161010
  Receipt Date: 20161119
  Transmission Date: 20170207
  Serious: Yes (Other)
  Sender: FDA-Public Use
  Company Number: US-ALEXION-A201607560

PATIENT
  Sex: Female

DRUGS (1)
  1. SOLIRIS [Suspect]
     Active Substance: ECULIZUMAB
     Indication: HAEMOLYTIC URAEMIC SYNDROME
     Dosage: UNK
     Route: 042

REACTIONS (6)
  - Blood potassium increased [Unknown]
  - Hypertension [Unknown]
  - Anaemia [Unknown]
  - Oedema [Unknown]
  - Renal impairment [Unknown]
  - Blood creatinine increased [Recovering/Resolving]
